FAERS Safety Report 8972115 (Version 1)
Quarter: 2012Q4

REPORT INFORMATION
  Report Type: 
  Country: US (occurrence: US)
  Receive Date: 20121218
  Receipt Date: 20121218
  Transmission Date: 20130627
  Serious: Yes (Other)
  Sender: FDA-Public Use
  Company Number: US-CELGENEUS-163-21880-12121139

PATIENT

DRUGS (5)
  1. REVLIMID [Suspect]
     Indication: MULTIPLE MYELOMA
     Dosage: Group A: level 1 (10mg); level 2 (15mg); level 3 (25mg)
     Route: 048
  2. REVLIMID [Suspect]
     Dosage: Group B: level 1 (15mg); level 2 (25mg); level 3 (15mg); level 4 (25mg)
     Route: 048
  3. REVLIMID [Suspect]
     Dosage: Group C: level 1 (5mg); level 2 (10mg); level 3 (15mg); level 4 (20mg)
     Route: 048
  4. DEXAMETHASONE [Suspect]
     Indication: MULTIPLE MYELOMA
     Dosage: 40 Milligram
     Route: 048
  5. ASPIRIN [Concomitant]
     Indication: THROMBOEMBOLISM PROPHYLAXIS
     Dosage: 81-325mg
     Route: 048

REACTIONS (12)
  - Hyperglycaemia [Unknown]
  - Hyponatraemia [Unknown]
  - Hypocalcaemia [Unknown]
  - Neutropenia [Unknown]
  - Thrombocytopenia [Unknown]
  - Pneumonia [Unknown]
  - Otitis media [Unknown]
  - Infection [Unknown]
  - Dizziness [Unknown]
  - Tremor [Unknown]
  - Constipation [Unknown]
  - Hiccups [Unknown]
